FAERS Safety Report 4367741-6 (Version None)
Quarter: 2004Q2

REPORT INFORMATION
  Report Type: 
  Country: None (occurrence: None)
  Receive Date: 20040527
  Receipt Date: 20030731
  Transmission Date: 20050107
  Serious: Yes (Hospitalization)
  Sender: FDA-Public Use
  Company Number: 343641

PATIENT
  Age: 25 Year
  Sex: Female

DRUGS (2)
  1. MEFLOQUINE HCL [Suspect]
     Indication: PROPHYLAXIS
     Dosage: 250 MG 1 PER WEEK
  2. ORAL CONTRACEPTIVE NOS (ORAL CONTRACEPTIVE NOS) [Concomitant]

REACTIONS (2)
  - ADVERSE EVENT [None]
  - PSYCHOTIC DISORDER [None]
